FAERS Safety Report 21728000 (Version 1)
Quarter: 2022Q4

REPORT INFORMATION
  Report Type: Spontaneous
  Country: US (occurrence: None)
  Receive Date: 20221213
  Receipt Date: 20221213
  Transmission Date: 20230113
  Serious: Yes (Other)
  Sender: FDA-Public Use
  Company Number: None

PATIENT
  Age: 59 Year
  Sex: Female
  Weight: 72.57 kg

DRUGS (16)
  1. MIDAZOLAM [Suspect]
     Active Substance: MIDAZOLAM
     Indication: Product used for unknown indication
     Dosage: 2  INJECTIONS TWICE DURING TESTING INJECTIONS VIA I.V.? ?
     Route: 042
     Dates: start: 20221116, end: 20221116
  2. METOPROLOL [Concomitant]
     Active Substance: METOPROLOL
  3. LISINOPRIL [Concomitant]
     Active Substance: LISINOPRIL
  4. TOPIRAMATE [Concomitant]
     Active Substance: TOPIRAMATE
  5. ATORVASTATIN [Concomitant]
     Active Substance: ATORVASTATIN
  6. HYDROCHLOROTHIAZIDE [Concomitant]
     Active Substance: HYDROCHLOROTHIAZIDE
  7. AMITRIPTYLINE [Concomitant]
     Active Substance: AMITRIPTYLINE
  8. PRAZOSIN [Concomitant]
     Active Substance: PRAZOSIN
  9. ASPIRIN LO-DOSE [Concomitant]
  10. SUMATRIPTAN [Concomitant]
     Active Substance: SUMATRIPTAN
  11. VITAMIN D NOS [Concomitant]
     Active Substance: VITAMIN D NOS
  12. VITAMIN C [Concomitant]
     Active Substance: ASCORBIC ACID
  13. VITAMIN B12 [Concomitant]
     Active Substance: CYANOCOBALAMIN
  14. C-PAD [Concomitant]
  15. CANE [Concomitant]
  16. VITAMIN D3 [Concomitant]
     Active Substance: CHOLECALCIFEROL

REACTIONS (6)
  - Tremor [None]
  - Blood pressure increased [None]
  - Anger [None]
  - Dyspnoea [None]
  - Disturbance in attention [None]
  - Lacrimal disorder [None]

NARRATIVE: CASE EVENT DATE: 20221116
